FAERS Safety Report 5390478-1 (Version None)
Quarter: 2007Q3

REPORT INFORMATION
  Report Type: 
  Country: None (occurrence: None)
  Receive Date: 20070718
  Receipt Date: 20070312
  Transmission Date: 20080115
  Serious: No
  Sender: FDA-Public Use
  Company Number: US-KINGPHARMUSA00001-K200700284

PATIENT

DRUGS (2)
  1. LEVOXYL [Suspect]
     Indication: AUTOIMMUNE THYROIDITIS
     Dosage: UNK, QD
     Route: 048
     Dates: start: 19970101, end: 20060901
  2. LEVOXYL [Suspect]
     Indication: HYPOTHYROIDISM
     Dosage: 187 MCG, (1/2 OF 200 MCG PLUS 1/2 OF 175 MCG), QD
     Route: 048
     Dates: start: 20060901

REACTIONS (3)
  - BLOOD THYROID STIMULATING HORMONE INCREASED [None]
  - DRUG INEFFECTIVE [None]
  - WEIGHT INCREASED [None]
